FAERS Safety Report 16677097 (Version 1)
Quarter: 2019Q3

REPORT INFORMATION
  Report Type: Spontaneous
  Country: JP (occurrence: JP)
  Receive Date: 20190807
  Receipt Date: 20190807
  Transmission Date: 20191004
  Serious: Yes (Death, Other)
  Sender: FDA-Public Use
  Company Number: JP-NAPPMUNDI-GBR-2019-0068933

PATIENT
  Sex: Male

DRUGS (3)
  1. OXYCONTIN [Suspect]
     Active Substance: OXYCODONE HYDROCHLORIDE
     Indication: CANCER PAIN
     Dosage: UNK UNK, PRN
     Route: 048
  2. OXINORM [OXYCODONE HYDROCHLORIDE] [Suspect]
     Active Substance: OXYCODONE HYDROCHLORIDE
     Indication: CANCER PAIN
     Dosage: UNK UNK, PRN
     Route: 048
  3. MAGMITT [Concomitant]
     Active Substance: MAGNESIUM OXIDE
     Indication: CONSTIPATION PROPHYLAXIS
     Route: 048

REACTIONS (4)
  - Lung carcinoma cell type unspecified stage IV [Fatal]
  - Somnolence [Unknown]
  - Delirium [Unknown]
  - Oedema [Unknown]
